FAERS Safety Report 7647673-8 (Version None)
Quarter: 2011Q3

REPORT INFORMATION
  Report Type: 
  Country: None (occurrence: None)
  Receive Date: 20110801
  Receipt Date: 20110801
  Transmission Date: 20111222
  Serious: Yes (Other)
  Sender: FDA-Public Use
  Company Number: None

PATIENT
  Sex: Female
  Weight: 112.03 kg

DRUGS (10)
  1. PREDNISONE [Concomitant]
     Route: 048
  2. EFFEXOR [Concomitant]
  3. PROZAC [Concomitant]
  4. AMBIEN [Concomitant]
  5. CELEXA [Concomitant]
     Route: 048
  6. FLEXERIL [Concomitant]
  7. ASPIRIN [Concomitant]
  8. CIMZIA [Suspect]
     Indication: RHEUMATOID ARTHRITIS
  9. LABETALOL HCL [Concomitant]
     Route: 048
  10. VITAMIN AND MINERAL PRENATAL SUPPLEMENT W/ FOLIC ACID CAP [Concomitant]

REACTIONS (2)
  - MATERNAL EXPOSURE DURING PREGNANCY [None]
  - INTRA-UTERINE DEATH [None]
